FAERS Safety Report 14141315 (Version 2)
Quarter: 2017Q4

REPORT INFORMATION
  Report Type: Spontaneous
  Country: BR (occurrence: BR)
  Receive Date: 20171030
  Receipt Date: 20171108
  Transmission Date: 20180321
  Serious: Yes (Other)
  Sender: FDA-Public Use
  Company Number: BR-ABBVIE-17P-020-2142949-00

PATIENT
  Age: 1 Day
  Sex: Female
  Weight: 1.81 kg

DRUGS (1)
  1. SURVANTA [Suspect]
     Active Substance: BERACTANT
     Indication: NEONATAL RESPIRATORY DISTRESS SYNDROME
     Route: 007
     Dates: start: 20170611, end: 20170611

REACTIONS (1)
  - Respiratory tract haemorrhage neonatal [Recovered/Resolved]

NARRATIVE: CASE EVENT DATE: 20170611
